FAERS Safety Report 10498876 (Version 2)
Quarter: 2015Q4

REPORT INFORMATION
  Report Type: Spontaneous
  Country: US (occurrence: US)
  Receive Date: 20141006
  Receipt Date: 20151216
  Transmission Date: 20160304
  Serious: No
  Sender: FDA-Public Use
  Company Number: US-ELI_LILLY_AND_COMPANY-US201409003427

PATIENT
  Sex: Female

DRUGS (2)
  1. ZYPREXA [Suspect]
     Active Substance: OLANZAPINE
     Indication: NEURALGIA
  2. ZYPREXA [Suspect]
     Active Substance: OLANZAPINE
     Indication: DEPRESSION
     Dosage: 1 PILL (UNSPECIFIED STRENGTH), TID
     Route: 065
     Dates: start: 2000

REACTIONS (3)
  - Crying [Unknown]
  - Nervousness [Not Recovered/Not Resolved]
  - Diabetes mellitus [Not Recovered/Not Resolved]
